FAERS Safety Report 20432614 (Version 3)
Quarter: 2022Q1

REPORT INFORMATION
  Report Type: Report from Study
  Country: US (occurrence: US)
  Receive Date: 20220204
  Receipt Date: 20220321
  Transmission Date: 20220424
  Serious: Yes (Life-Threatening)
  Sender: FDA-Public Use
  Company Number: US-GILEAD-2022-0568448

PATIENT
  Age: 49 Year
  Sex: Female
  Weight: 64.5 kg

DRUGS (19)
  1. SACITUZUMAB GOVITECAN [Suspect]
     Active Substance: SACITUZUMAB GOVITECAN
     Indication: Breast cancer metastatic
     Dosage: 664 MG, CYCLICAL 2 WEEKS ON, 1 WEEK OFF (CYCLE1 DAYS 1 AND 8)
     Route: 042
     Dates: start: 20200320, end: 20200326
  2. SACITUZUMAB GOVITECAN [Suspect]
     Active Substance: SACITUZUMAB GOVITECAN
     Dosage: 487 MG, CYCLICAL 2 WEEKS ON, 1 WEEK OFF (C2D1)
     Route: 042
     Dates: start: 20200417, end: 20200424
  3. SACITUZUMAB GOVITECAN [Suspect]
     Active Substance: SACITUZUMAB GOVITECAN
     Dosage: CYCLICAL 2 WEEKS ON, 1 WEEK OFF
     Route: 042
     Dates: start: 20200501
  4. SACITUZUMAB GOVITECAN [Suspect]
     Active Substance: SACITUZUMAB GOVITECAN
     Dosage: CYCLICAL 2 WEEKS ON, 1 WEEK OFF
     Route: 042
     Dates: start: 20200515
  5. KEFLEX [Concomitant]
     Active Substance: CEPHALEXIN
  6. ROCEPHIN [Concomitant]
     Active Substance: CEFTRIAXONE SODIUM
  7. DOCUSATE [Concomitant]
     Active Substance: DOCUSATE
  8. PROCHLORPERAZINE [Concomitant]
     Active Substance: PROCHLORPERAZINE
  9. DENOSUMAB [Concomitant]
     Active Substance: DENOSUMAB
  10. DEXAMETHASONE [Concomitant]
     Active Substance: DEXAMETHASONE
  11. DIAZEPAM [Concomitant]
     Active Substance: DIAZEPAM
  12. FENTANYL [Concomitant]
     Active Substance: FENTANYL
  13. MELATONIN [Concomitant]
     Active Substance: MELATONIN
  14. MIRALAX [Concomitant]
     Active Substance: POLYETHYLENE GLYCOL 3350
  15. NEUPOGEN [Concomitant]
     Active Substance: FILGRASTIM
  16. OXYCODONE [Concomitant]
     Active Substance: OXYCODONE
  17. PANTOPRAZOLE [Concomitant]
     Active Substance: PANTOPRAZOLE
  18. VITAMIN B6 [Concomitant]
     Active Substance: PYRIDOXINE HYDROCHLORIDE
  19. ALPRAZOLAM [Concomitant]
     Active Substance: ALPRAZOLAM

REACTIONS (1)
  - Neutropenia [Recovered/Resolved]

NARRATIVE: CASE EVENT DATE: 20200424
